FAERS Safety Report 14224817 (Version 2)
Quarter: 2018Q1

REPORT INFORMATION
  Report Type: Report from Study
  Country: JP (occurrence: JP)
  Receive Date: 20171127
  Receipt Date: 20180209
  Transmission Date: 20180508
  Serious: Yes (Death)
  Sender: FDA-Public Use
  Company Number: JP-UCBSA-2017046422

PATIENT
  Age: 64 Year
  Sex: Male

DRUGS (7)
  1. VEEN-F [Concomitant]
     Active Substance: CALCIUM CHLORIDE\MAGNESIUM CHLORIDE\POTASSIUM CHLORIDE\SODIUM ACETATE\SODIUM CHLORIDE
     Indication: FLUID REPLACEMENT
     Dosage: 365 ML, ONCE DAILY (QD)
     Route: 042
     Dates: start: 20160408, end: 20160408
  2. DEXMEDETOMIDINE HYDROCHLORIDE. [Concomitant]
     Active Substance: DEXMEDETOMIDINE HYDROCHLORIDE
     Indication: SEDATIVE THERAPY
     Dosage: 400 ?G, ONCE DAILY (QD)
     Route: 042
     Dates: start: 20160408, end: 20160409
  3. BFLUID [Concomitant]
     Active Substance: AMINO ACIDS\DEXTROSE\ELECTROLYTES NOS\VITAMINS
     Indication: FLUID REPLACEMENT
     Dosage: 1500 ML, ONCE DAILY (QD)
     Route: 042
     Dates: start: 20160409, end: 20160409
  4. LEVETIRACETAM. [Suspect]
     Active Substance: LEVETIRACETAM
     Indication: MYOCLONUS
     Dosage: 1000 MG, ONCE DAILY (QD)
     Route: 041
     Dates: start: 20160408, end: 20160408
  5. LEVETIRACETAM. [Suspect]
     Active Substance: LEVETIRACETAM
     Indication: OFF LABEL USE
     Dosage: 500 MG, ONCE DAILY (QD)
     Route: 041
     Dates: start: 20160409, end: 20160409
  6. PROPOFOL. [Concomitant]
     Active Substance: PROPOFOL
     Indication: SEDATIVE THERAPY
     Dosage: 266 ML, ONCE DAILY (QD)
     Route: 042
     Dates: start: 20160408, end: 20160409
  7. NICARDIPINE HYDROCHLORIDE. [Concomitant]
     Active Substance: NICARDIPINE HYDROCHLORIDE
     Indication: PRODUCT USED FOR UNKNOWN INDICATION
     Route: 042
     Dates: start: 20160408, end: 20160409

REACTIONS (3)
  - Off label use [Unknown]
  - Altered state of consciousness [Fatal]
  - Subarachnoid haemorrhage [Fatal]

NARRATIVE: CASE EVENT DATE: 20160408
